FAERS Safety Report 23147573 (Version 1)
Quarter: 2023Q4

REPORT INFORMATION
  Report Type: Spontaneous
  Country: BR (occurrence: BR)
  Receive Date: 20231106
  Receipt Date: 20231106
  Transmission Date: 20240109
  Serious: Yes (Hospitalization, Other)
  Sender: FDA-Public Use
  Company Number: BR-002147023-NVSC2023BR020352

PATIENT
  Sex: Male

DRUGS (5)
  1. EXELON PATCH [Suspect]
     Active Substance: RIVASTIGMINE
     Dosage: 1 DF 1 DOSAGE FORM (1 DOSAGE FORM, QD (EXELON PATCH, EXTENDED RELEASE, 9MG)
     Route: 062
  2. EXELON PATCH [Suspect]
     Active Substance: RIVASTIGMINE
     Dosage: 1 DF 1 DOSAGE FORM, QD (EXELON PATCH 10, EXTENDED RELEASE, 18 MG)
     Route: 062
     Dates: start: 2021
  3. EXELON PATCH [Suspect]
     Active Substance: RIVASTIGMINE
     Dosage: 1 DF 1 DOSAGE FORM, QD (EXELON PATCH 5CM?)
     Route: 062
  4. EXELON PATCH [Suspect]
     Active Substance: RIVASTIGMINE
     Dosage: 1 DF 1 DOSAGE FORM, QD (EXELON PATCH, EXTENDED RELEASE, 9MG )
     Route: 062
     Dates: start: 2018
  5. EXELON PATCH [Suspect]
     Active Substance: RIVASTIGMINE
     Indication: Dementia Alzheimer^s type
     Dosage: 27 MG (PATCH 15) POSOLOGY
     Route: 062
     Dates: start: 202203

REACTIONS (5)
  - Product adhesion issue [Recovered/Resolved]
  - Infarction [Recovered/Resolved]
  - Product adhesion issue [Recovered/Resolved]
  - Product administration error [Recovered/Resolved]
  - Urinary tract infection [Recovered/Resolved]

NARRATIVE: CASE EVENT DATE: 20210101
